FAERS Safety Report 23407556 (Version 2)
Quarter: 2024Q1

REPORT INFORMATION
  Report Type: Spontaneous
  Country: US (occurrence: US)
  Receive Date: 20240117
  Receipt Date: 20240212
  Transmission Date: 20240410
  Serious: No
  Sender: FDA-Public Use
  Company Number: US-Blueprint Medicines Corporation-SP-US-2024-000072

PATIENT
  Age: 77 Year
  Sex: Female

DRUGS (2)
  1. AYVAKIT [Suspect]
     Active Substance: AVAPRITINIB
     Indication: Indolent systemic mastocytosis
     Route: 048
     Dates: start: 20231130
  2. AYVAKIT [Suspect]
     Active Substance: AVAPRITINIB
     Indication: Systemic mastocytosis
     Route: 065
     Dates: start: 20231228

REACTIONS (10)
  - Blood alkaline phosphatase increased [Unknown]
  - Blood albumin increased [Unknown]
  - Lipids increased [Unknown]
  - Metabolic function test abnormal [Unknown]
  - Swelling [Unknown]
  - Weight increased [Unknown]
  - Peripheral swelling [Unknown]
  - Liver function test abnormal [Unknown]
  - Fatigue [Unknown]
  - Fluid retention [Unknown]

NARRATIVE: CASE EVENT DATE: 20240110
